FAERS Safety Report 24973308 (Version 1)
Quarter: 2025Q1

REPORT INFORMATION
  Report Type: Spontaneous
  Country: JP (occurrence: JP)
  Receive Date: 20250216
  Receipt Date: 20250216
  Transmission Date: 20250408
  Serious: Yes (Hospitalization, Other)
  Sender: JOHNSON AND JOHNSON
  Company Number: JP-JNJFOC-20250180699

PATIENT
  Age: 58 Year
  Sex: Male

DRUGS (10)
  1. PALIPERIDONE PALMITATE [Suspect]
     Active Substance: PALIPERIDONE PALMITATE
     Indication: Schizophrenia
     Route: 030
     Dates: start: 20250102
  2. PALIPERIDONE PALMITATE [Suspect]
     Active Substance: PALIPERIDONE PALMITATE
     Route: 030
     Dates: start: 20190905, end: 20190905
  3. PALIPERIDONE PALMITATE [Suspect]
     Active Substance: PALIPERIDONE PALMITATE
     Route: 030
  4. OLANZAPINE [Suspect]
     Active Substance: OLANZAPINE
     Indication: Product used for unknown indication
     Route: 048
  5. OLANZAPINE [Suspect]
     Active Substance: OLANZAPINE
     Route: 048
     Dates: end: 20240209
  6. OLANZAPINE [Suspect]
     Active Substance: OLANZAPINE
     Route: 048
     Dates: start: 20240425
  7. MIDODRINE HYDROCHLORIDE [Suspect]
     Active Substance: MIDODRINE HYDROCHLORIDE
     Indication: Product used for unknown indication
     Route: 048
     Dates: start: 20231018, end: 20231024
  8. MIDODRINE HYDROCHLORIDE [Suspect]
     Active Substance: MIDODRINE HYDROCHLORIDE
     Route: 048
     Dates: start: 20231025, end: 20231031
  9. AMEZINIUM METILSULFATE [Suspect]
     Active Substance: AMEZINIUM METILSULFATE
     Indication: Blood pressure systolic decreased
     Route: 048
     Dates: start: 20231101, end: 20231109
  10. AMEZINIUM METILSULFATE [Suspect]
     Active Substance: AMEZINIUM METILSULFATE
     Route: 048
     Dates: start: 20231110

REACTIONS (6)
  - Malnutrition [Unknown]
  - Schizophrenia [Recovered/Resolved]
  - Renal ischaemia [Unknown]
  - Pancreatic mass [Unknown]
  - Blood pressure systolic decreased [Not Recovered/Not Resolved]
  - Off label use [Unknown]

NARRATIVE: CASE EVENT DATE: 20231019
